FAERS Safety Report 4492075-9 (Version None)
Quarter: 2004Q4

REPORT INFORMATION
  Report Type: 
  Country: None (occurrence: None)
  Receive Date: 20041029
  Receipt Date: 20041004
  Transmission Date: 20050328
  Serious: Yes (Hospitalization)
  Sender: FDA-Public Use
  Company Number: 6010880

PATIENT
  Age: 79 Year
  Sex: Male

DRUGS (5)
  1. CARDENSIEL          (BISOPROLOL) [Suspect]
     Dosage: 1  DOSAGE FORM (1 DOSAGE FORM, 1 IN 1 D), ORAL
     Route: 048
     Dates: start: 20030101
  2. GLICLAZIDE     (GLICLAZIDE) [Suspect]
     Dosage: 2.00 DOSAGE FORMS (1 DOSAGE FORMS, 2 IN 1 D); ORAL
     Route: 048
     Dates: start: 19990101, end: 20040905
  3. RAMIPRIL [Suspect]
     Dosage: 1 DOSAGE FORMS
     Dates: start: 19990101, end: 20040905
  4. ZOCOR [Suspect]
     Dosage: ORAL
     Route: 048
     Dates: start: 19990101, end: 20040905
  5. ASPEGIC 1000 [Suspect]
     Dosage: 1 DOSAGE FORMS(1 DOSAGE FORM, 1 IN 1 D), ORAL
     Route: 048
     Dates: start: 19990101, end: 20040905

REACTIONS (5)
  - BLOOD BILIRUBIN INCREASED [None]
  - DUODENAL ULCER [None]
  - GASTROINTESTINAL NECROSIS [None]
  - PANCREATITIS ACUTE [None]
  - SEPTIC SHOCK [None]
